FAERS Safety Report 22192831 (Version 1)
Quarter: 2023Q2

REPORT INFORMATION
  Report Type: Spontaneous
  Country: US (occurrence: None)
  Receive Date: 20230410
  Receipt Date: 20230410
  Transmission Date: 20230721
  Serious: No
  Sender: FDA-Public Use
  Company Number: US-Eisai Medical Research-EC-2023-135562

PATIENT
  Age: 79 Year
  Sex: Female

DRUGS (2)
  1. DONEPEZIL [Suspect]
     Active Substance: DONEPEZIL
     Indication: Dementia
     Dosage: BRAND ARICEPT
     Route: 048
     Dates: start: 2022, end: 2023
  2. DONEPEZIL [Suspect]
     Active Substance: DONEPEZIL
     Dosage: GENERIC DONEPEZIL
     Route: 048
     Dates: start: 2023, end: 2023

REACTIONS (1)
  - Fatigue [Recovered/Resolved]

NARRATIVE: CASE EVENT DATE: 20230101
